FAERS Safety Report 7557307-9 (Version None)
Quarter: 2011Q2

REPORT INFORMATION
  Report Type: 
  Country: None (occurrence: None)
  Receive Date: 20110620
  Receipt Date: 20101208
  Transmission Date: 20111010
  Serious: Yes (Other)
  Sender: FDA-Public Use
  Company Number: PHHY2010DE92220

PATIENT
  Age: 67 Year
  Sex: Female

DRUGS (6)
  1. ANTIBIOTICS [Concomitant]
  2. CYCLOPHOSPHAMIDE [Concomitant]
  3. PACLITAXEL [Concomitant]
  4. EPIRUBICIN [Concomitant]
  5. ZOLEDRONIC ACID [Suspect]
     Dosage: UNK UKN, UNK
     Route: 042
  6. CAPECITABINE [Concomitant]

REACTIONS (3)
  - OSTEONECROSIS OF JAW [None]
  - DECUBITUS ULCER [None]
  - NEOPLASM RECURRENCE [None]
